FAERS Safety Report 13746433 (Version 1)
Quarter: 2017Q3

REPORT INFORMATION
  Report Type: Spontaneous
  Country: SE (occurrence: SE)
  Receive Date: 20170712
  Receipt Date: 20170712
  Transmission Date: 20171127
  Serious: Yes (Hospitalization)
  Sender: FDA-Public Use
  Company Number: SE-TEVA-784807ISR

PATIENT
  Age: 68 Year
  Sex: Female

DRUGS (6)
  1. CAPECITABINE. [Suspect]
     Active Substance: CAPECITABINE
  2. DOCETAXEL. [Suspect]
     Active Substance: DOCETAXEL
  3. VINORELBINE [Suspect]
     Active Substance: VINORELBINE\VINORELBINE TARTRATE
  4. ABRAXANE [Suspect]
     Active Substance: PACLITAXEL
  5. CAELYX [Suspect]
     Active Substance: DOXORUBICIN HYDROCHLORIDE
  6. HALAVEN [Suspect]
     Active Substance: ERIBULIN MESYLATE

REACTIONS (3)
  - Agranulocytosis [Recovered/Resolved]
  - Fatigue [Recovered/Resolved]
  - Pyrexia [Recovered/Resolved]
